FAERS Safety Report 15459159 (Version 1)
Quarter: 2018Q4

REPORT INFORMATION
  Report Type: Report from Study
  Country: None (occurrence: CA)
  Receive Date: 20181003
  Receipt Date: 20181003
  Transmission Date: 20190204
  Serious: Yes (Hospitalization, Other)
  Sender: FDA-Public Use
  Company Number: CA-ABBVIE-18K-028-2504087-00

PATIENT
  Sex: Male

DRUGS (1)
  1. HUMIRA [Suspect]
     Active Substance: ADALIMUMAB
     Indication: ANKYLOSING SPONDYLITIS
     Route: 058

REACTIONS (7)
  - Skin laceration [Recovered/Resolved]
  - Calculus urinary [Unknown]
  - Salivary gland mass [Not Recovered/Not Resolved]
  - Fall [Recovered/Resolved]
  - Pain in extremity [Not Recovered/Not Resolved]
  - Skin cancer [Not Recovered/Not Resolved]
  - Stoma creation [Not Recovered/Not Resolved]

NARRATIVE: CASE EVENT DATE: 2018
